FAERS Safety Report 15247853 (Version 1)
Quarter: 2018Q3

REPORT INFORMATION
  Report Type: Report from Study
  Country: BR (occurrence: BR)
  Receive Date: 20180807
  Receipt Date: 20180807
  Transmission Date: 20181010
  Serious: Yes (Hospitalization, Other)
  Sender: FDA-Public Use
  Company Number: BR-EMD SERONO-9038639

PATIENT
  Age: 79 Year
  Sex: Female

DRUGS (1)
  1. REBIF [Suspect]
     Active Substance: INTERFERON BETA-1A
     Indication: MULTIPLE SCLEROSIS
     Route: 058
     Dates: start: 20051001

REACTIONS (5)
  - Spinal disorder [Unknown]
  - Skin discolouration [Unknown]
  - Dyskinesia [Unknown]
  - Pain [Unknown]
  - Vein rupture [Unknown]

NARRATIVE: CASE EVENT DATE: 201710
